FAERS Safety Report 7648246-3 (Version None)
Quarter: 2011Q3

REPORT INFORMATION
  Report Type: 
  Country: None (occurrence: None)
  Receive Date: 20110801
  Receipt Date: 20110726
  Transmission Date: 20111222
  Serious: No
  Sender: FDA-Public Use
  Company Number: US-PFIZER INC-2011169917

PATIENT
  Sex: Female
  Weight: 73.5 kg

DRUGS (2)
  1. DEPO-PROVERA [Suspect]
     Indication: CONTRACEPTION
     Dosage: UNK
     Dates: start: 20100101, end: 20110101
  2. PLAN B ONE-STEP [Suspect]
     Indication: CONTRACEPTION
     Dosage: 1.5MG, 1X/DAY (1.5 MG, 1 IN 1 D)
     Route: 048
     Dates: start: 20110713, end: 20110713

REACTIONS (1)
  - ABDOMINAL PAIN [None]
